FAERS Safety Report 12871906 (Version 1)
Quarter: 2016Q4

REPORT INFORMATION
  Report Type: Spontaneous
  Country: FR (occurrence: FR)
  Receive Date: 20161021
  Receipt Date: 20161021
  Transmission Date: 20170207
  Serious: Yes (Other)
  Sender: FDA-Public Use
  Company Number: FR-009507513-1610FRA010261

PATIENT
  Sex: Female

DRUGS (3)
  1. EMEND [Interacting]
     Active Substance: APREPITANT
     Dosage: UNK
     Route: 048
     Dates: start: 20160623
  2. DOCETAXEL. [Interacting]
     Active Substance: DOCETAXEL
     Indication: INVASIVE DUCTAL BREAST CARCINOMA
     Dosage: 2 CYCLES
     Route: 042
     Dates: start: 20160602, end: 20160623
  3. EMEND [Suspect]
     Active Substance: APREPITANT
     Indication: PROPHYLAXIS OF NAUSEA AND VOMITING
     Dosage: UNK
     Route: 048
     Dates: start: 20160602

REACTIONS (4)
  - Dermatitis bullous [Recovered/Resolved with Sequelae]
  - Myalgia [Recovered/Resolved]
  - Stomatitis [Recovered/Resolved]
  - Neuropathy peripheral [Not Recovered/Not Resolved]

NARRATIVE: CASE EVENT DATE: 2016
